FAERS Safety Report 10733503 (Version 1)
Quarter: 2015Q1

REPORT INFORMATION
  Report Type: Spontaneous
  Country: DE (occurrence: DE)
  Receive Date: 20150123
  Receipt Date: 20150123
  Transmission Date: 20150721
  Serious: Yes (Hospitalization)
  Sender: FDA-Public Use
  Company Number: DE-TEVA-533702GER

PATIENT
  Age: 76 Year
  Sex: Male

DRUGS (8)
  1. PANTOZOL [Suspect]
     Active Substance: PANTOPRAZOLE SODIUM
     Route: 065
  2. LEVETIRACETAM-RATIOPHARM 100 MG/ML [Suspect]
     Active Substance: LEVETIRACETAM
     Dates: start: 201501, end: 201501
  3. KEPPRA [Suspect]
     Active Substance: LEVETIRACETAM
     Route: 065
  4. FRESUBIN [Suspect]
     Active Substance: AMINO ACIDS\DEXTROSE\ELECTROLYTES NOS\SOYBEAN OIL\VITAMINS
     Route: 065
  5. KEPPRA [Suspect]
     Active Substance: LEVETIRACETAM
     Route: 065
  6. TOPAMAX [Suspect]
     Active Substance: TOPIRAMATE
     Route: 065
  7. L-THYROXIN 125NG [Suspect]
     Active Substance: LEVOTHYROXINE
     Route: 065
  8. THIAMIN 100MG [Suspect]
     Active Substance: THIAMINE
     Route: 065

REACTIONS (2)
  - Infection [Unknown]
  - Blood urine present [Unknown]

NARRATIVE: CASE EVENT DATE: 201501
